FAERS Safety Report 6941772-1 (Version None)
Quarter: 2010Q3

REPORT INFORMATION
  Report Type: 
  Country: None (occurrence: None)
  Receive Date: 20100826
  Receipt Date: 20100803
  Transmission Date: 20110219
  Serious: Yes (Hospitalization)
  Sender: FDA-Public Use
  Company Number: US-BIOGENIDEC-2010BI024093

PATIENT
  Age: 41 Year
  Sex: Female

DRUGS (10)
  1. TYSABRI [Suspect]
     Indication: MULTIPLE SCLEROSIS
     Route: 042
     Dates: start: 20080502, end: 20100614
  2. LEVOTHYROXINE [Concomitant]
     Dates: start: 20090601
  3. OXYBUTYNIN [Concomitant]
     Route: 048
     Dates: start: 20090630
  4. GABAPENTIN [Concomitant]
     Route: 048
     Dates: start: 20100624
  5. NITROFURANTOIN [Concomitant]
  6. METHYLPREDNISOLONE [Concomitant]
  7. CIPROFLOXACIN [Concomitant]
     Dates: start: 20030703
  8. DEXAMETHASONE [Concomitant]
     Dates: start: 20100414
  9. MACRODANTIN [Concomitant]
     Route: 048
     Dates: start: 20100624
  10. BACLOFEN [Concomitant]

REACTIONS (3)
  - PROGRESSIVE MULTIFOCAL LEUKOENCEPHALOPATHY [None]
  - URINARY TRACT INFECTION [None]
  - VERTEBRAL COLUMN MASS [None]
